FAERS Safety Report 4498959-X (Version None)
Quarter: 2004Q4

REPORT INFORMATION
  Report Type: 
  Country: None (occurrence: None)
  Receive Date: 20041108
  Receipt Date: 20041101
  Transmission Date: 20050328
  Serious: Yes (Life-Threatening)
  Sender: FDA-Public Use
  Company Number: 2004AC00704

PATIENT
  Age: 46 Year
  Sex: Female

DRUGS (3)
  1. PROPOFOL [Suspect]
     Indication: GENERAL ANAESTHESIA
  2. REMIFENTANIL [Suspect]
     Indication: GENERAL ANAESTHESIA
  3. ATRACURIUM [Suspect]
     Indication: GENERAL ANAESTHESIA
     Dosage: BOLUS + CONTINUOUSLY

REACTIONS (11)
  - AIR EMBOLISM [None]
  - BLOOD PRESSURE DECREASED [None]
  - CARDIAC OUTPUT DECREASED [None]
  - CEREBRAL ARTERY EMBOLISM [None]
  - CEREBRAL PERFUSION PRESSURE DECREASED [None]
  - CHOLECYSTECTOMY [None]
  - DRUG LEVEL INCREASED [None]
  - HEPATIC RUPTURE [None]
  - PCO2 DECREASED [None]
  - PNEUMOPERITONEUM [None]
  - PROCEDURAL COMPLICATION [None]
